FAERS Safety Report 16762809 (Version 2)
Quarter: 2019Q3

REPORT INFORMATION
  Report Type: Spontaneous
  Country: US (occurrence: US)
  Receive Date: 20190901
  Receipt Date: 20190912
  Transmission Date: 20191005
  Serious: Yes (Hospitalization, Other)
  Sender: FDA-Public Use
  Company Number: US-BEH-2019106230

PATIENT
  Age: 31 Year
  Sex: Female

DRUGS (1)
  1. HAEGARDA [Suspect]
     Active Substance: HUMAN C1-ESTERASE INHIBITOR
     Dosage: 6000 INTERNATIONAL UNIT
     Route: 058
     Dates: start: 201902

REACTIONS (7)
  - Unevaluable event [Unknown]
  - Myalgia [Unknown]
  - Drug ineffective [Unknown]
  - Therapy cessation [Unknown]
  - Medical procedure [Unknown]
  - Pain [Unknown]
  - Swelling [Unknown]

NARRATIVE: CASE EVENT DATE: 2019
